FAERS Safety Report 16835141 (Version 2)
Quarter: 2020Q1

REPORT INFORMATION
  Report Type: Spontaneous
  Country: US (occurrence: US)
  Receive Date: 20190920
  Receipt Date: 20200116
  Transmission Date: 20200409
  Serious: No
  Sender: FDA-Public Use
  Company Number: US-SA-2019SA258330

PATIENT
  Age: 55 Year
  Sex: Female

DRUGS (13)
  1. DUPIXENT [Suspect]
     Active Substance: DUPILUMAB
     Indication: DERMATITIS
     Dosage: 300 MG, QOW
     Route: 058
     Dates: start: 20180822
  2. ESTRADIOL. [Concomitant]
     Active Substance: ESTRADIOL
  3. CEPHALEXINE [Concomitant]
     Active Substance: CEPHALEXIN
  4. AUGMENTED BETAMETHASONE DIPROPIONATE [Concomitant]
  5. METHYLPHENIDAT [Concomitant]
     Active Substance: METHYLPHENIDATE
  6. CEFUROXIME. [Concomitant]
     Active Substance: CEFUROXIME
  7. LEVOCETIRIZINE [Concomitant]
     Active Substance: LEVOCETIRIZINE
  8. MUPIROCIN. [Concomitant]
     Active Substance: MUPIROCIN
  9. DOXEPIN [Concomitant]
     Active Substance: DOXEPIN
  10. BUPROPION. [Concomitant]
     Active Substance: BUPROPION
  11. BETAMETH DIPROPIONATE [Concomitant]
  12. LEVOTHYROXINE. [Concomitant]
     Active Substance: LEVOTHYROXINE
  13. PAROXETINE HYDROCHLORIDE. [Concomitant]
     Active Substance: PAROXETINE HYDROCHLORIDE

REACTIONS (3)
  - Dry eye [Not Recovered/Not Resolved]
  - Umbilical erythema [Not Recovered/Not Resolved]
  - Skin irritation [Not Recovered/Not Resolved]

NARRATIVE: CASE EVENT DATE: 2019
